FAERS Safety Report 8001006-6 (Version None)
Quarter: 2011Q4

REPORT INFORMATION
  Report Type: 
  Country: None (occurrence: None)
  Receive Date: 20111222
  Receipt Date: 20110321
  Transmission Date: 20120403
  Serious: No
  Sender: FDA-Public Use
  Company Number: US-GLAXOSMITHKLINE-A0919231A

PATIENT
  Age: 59 Year
  Sex: Female

DRUGS (5)
  1. LISINOPRIL [Concomitant]
  2. PRAVASTATIN [Concomitant]
  3. ZYRTEC [Concomitant]
  4. FLONASE [Suspect]
     Indication: RHINITIS ALLERGIC
     Dosage: 2SPR PER DAY
     Route: 045
     Dates: start: 20090301
  5. METFORMIN HCL [Concomitant]

REACTIONS (1)
  - HERPES ZOSTER [None]
